FAERS Safety Report 12230943 (Version 1)
Quarter: 2016Q2

REPORT INFORMATION
  Report Type: Spontaneous
  Country: DE (occurrence: DE)
  Receive Date: 20160401
  Receipt Date: 20160401
  Transmission Date: 20160815
  Serious: Yes (Other)
  Sender: FDA-Public Use
  Company Number: DE-SUN PHARMACEUTICAL INDUSTRIES LTD-2016RR-114189

PATIENT
  Age: 38 Year
  Sex: Female
  Weight: 80.9 kg

DRUGS (3)
  1. FOLIO [Concomitant]
     Active Substance: FOLIC ACID
     Indication: PROPHYLAXIS OF NEURAL TUBE DEFECT
     Dosage: 0.4 MG, DAILY, FROM 0-38 GESTATIONAL WEEK
     Route: 048
     Dates: start: 20150222, end: 20151115
  2. CEFUROXIM [Concomitant]
     Active Substance: CEFUROXIME
     Indication: PREMATURE RUPTURE OF MEMBRANES
     Dosage: 1500 MG, (4500 MG/D), ON 40.1 GESTATIONAL WEEK
     Route: 041
     Dates: start: 20151130, end: 20151130
  3. OLANZAPINE. [Suspect]
     Active Substance: OLANZAPINE
     Indication: SCHIZOPHRENIA
     Dosage: 10 MG, DAILY, FROM 0-40.1 GESTATIONAL WEEK
     Route: 048
     Dates: start: 20150222, end: 20151130

REACTIONS (1)
  - Gestational diabetes [Recovered/Resolved]
